FAERS Safety Report 5094293-8 (Version None)
Quarter: 2006Q3

REPORT INFORMATION
  Report Type: 
  Country: None (occurrence: None)
  Receive Date: 20060831
  Receipt Date: 20060825
  Transmission Date: 20061208
  Serious: Yes (Hospitalization, Other)
  Sender: FDA-Public Use
  Company Number: US-BRISTOL-MYERS SQUIBB COMPANY-13489752

PATIENT
  Sex: Female
  Weight: 82 kg

DRUGS (1)
  1. ERBITUX [Suspect]
     Indication: SQUAMOUS CELL CARCINOMA
     Route: 042

REACTIONS (5)
  - ERYTHEMA [None]
  - LOCALISED OEDEMA [None]
  - PYREXIA [None]
  - SKIN IRRITATION [None]
  - SKIN WARM [None]
